FAERS Safety Report 24202531 (Version 3)
Quarter: 2024Q3

REPORT INFORMATION
  Report Type: Report from Study
  Country: US (occurrence: US)
  Receive Date: 20240813
  Receipt Date: 20240822
  Transmission Date: 20241017
  Serious: No
  Sender: AMGEN
  Company Number: US-AMGEN-USASL2024155918

PATIENT
  Age: 76 Year
  Sex: Male
  Weight: 69.1 kg

DRUGS (2)
  1. NEULASTA [Suspect]
     Active Substance: PEGFILGRASTIM
     Indication: Lung carcinoma cell type unspecified stage 0
     Dosage: 6 MILLIGRAM, AFTER CHEMO
     Route: 065
  2. NEULASTA [Suspect]
     Active Substance: PEGFILGRASTIM
     Indication: Prophylaxis

REACTIONS (1)
  - Device adhesion issue [Recovered/Resolved]

NARRATIVE: CASE EVENT DATE: 20240801
